APPROVED DRUG PRODUCT: SPIRONOLACTONE
Active Ingredient: SPIRONOLACTONE
Strength: 50MG
Dosage Form/Route: TABLET;ORAL
Application: A205936 | Product #002 | TE Code: AB
Applicant: ZYDUS PHARMACEUTICALS USA INC
Approved: Jul 18, 2018 | RLD: No | RS: No | Type: RX